FAERS Safety Report 8803435 (Version 2)
Quarter: 2015Q1

REPORT INFORMATION
  Report Type: Report from Study
  Country: US (occurrence: US)
  Receive Date: 20120924
  Receipt Date: 20150302
  Transmission Date: 20150721
  Serious: Yes (Death)
  Sender: FDA-Public Use
  Company Number: US-ROCHE-1095487

PATIENT
  Sex: Female

DRUGS (15)
  1. MEGACE [Concomitant]
     Active Substance: MEGESTROL ACETATE
     Route: 065
  2. LISINOPRIL. [Concomitant]
     Active Substance: LISINOPRIL
     Route: 065
  3. ACTOS [Concomitant]
     Active Substance: PIOGLITAZONE HYDROCHLORIDE
  4. HYTRIN [Concomitant]
     Active Substance: TERAZOSIN HYDROCHLORIDE
     Indication: HYPERTENSION
  5. GEMZAR [Concomitant]
     Active Substance: GEMCITABINE HYDROCHLORIDE
     Route: 065
  6. DECADRON [Concomitant]
     Active Substance: DEXAMETHASONE
     Route: 065
  7. ARANESP [Concomitant]
     Active Substance: DARBEPOETIN ALFA
     Route: 058
  8. ATIVAN [Concomitant]
     Active Substance: LORAZEPAM
  9. SENOKOT [Concomitant]
     Active Substance: SENNOSIDES
     Route: 048
  10. PROTONIX (UNITED STATES) [Concomitant]
     Route: 065
  11. AVASTIN [Suspect]
     Active Substance: BEVACIZUMAB
     Indication: OVARIAN CANCER
     Route: 065
     Dates: start: 20060103
  12. AVASTIN [Suspect]
     Active Substance: BEVACIZUMAB
     Route: 065
  13. MEGACE [Concomitant]
     Active Substance: MEGESTROL ACETATE
     Route: 065
  14. MOBIC [Concomitant]
     Active Substance: MELOXICAM
  15. ALOXI [Concomitant]
     Active Substance: PALONOSETRON HYDROCHLORIDE
     Route: 065

REACTIONS (18)
  - Bone pain [Unknown]
  - Dyspepsia [Unknown]
  - Off label use [Unknown]
  - Nausea [Unknown]
  - Nasopharyngitis [Unknown]
  - Arthralgia [Unknown]
  - Pain [Unknown]
  - Death [Fatal]
  - Fatigue [Unknown]
  - Vomiting [Unknown]
  - Lacrimation increased [Unknown]
  - Nodule [Unknown]
  - Insomnia [Unknown]
  - Constipation [Unknown]
  - Abdominal pain [Unknown]
  - Hypertension [Unknown]
  - Dry mouth [Unknown]
  - Rhinorrhoea [Unknown]
